FAERS Safety Report 9338285 (Version 1)
Quarter: 2013Q2

REPORT INFORMATION
  Report Type: Report from Study
  Country: BR (occurrence: BR)
  Receive Date: 20130610
  Receipt Date: 20130610
  Transmission Date: 20140414
  Serious: Yes (Other)
  Sender: FDA-Public Use
  Company Number: BR-ROCHE-1233172

PATIENT
  Sex: Male

DRUGS (1)
  1. INTERFERON ALFA-2A [Suspect]
     Indication: PRODUCT USED FOR UNKNOWN INDICATION
     Route: 065

REACTIONS (10)
  - Drug ineffective [Unknown]
  - Hepatitis C [Unknown]
  - Nervousness [Unknown]
  - Chills [Unknown]
  - Decreased appetite [Unknown]
  - Pruritus generalised [Unknown]
  - Headache [Unknown]
  - Nausea [Unknown]
  - Pain [Unknown]
  - Dizziness [Unknown]
